FAERS Safety Report 4370911-4 (Version None)
Quarter: 2004Q2

REPORT INFORMATION
  Report Type: 
  Country: None (occurrence: None)
  Receive Date: 20040601
  Receipt Date: 20040518
  Transmission Date: 20050107
  Serious: Yes (Other)
  Sender: FDA-Public Use
  Company Number: 2004033492

PATIENT
  Age: 13 Year
  Sex: Female
  Weight: 70 kg

DRUGS (3)
  1. ZOLOFT [Suspect]
     Indication: DEPRESSION
     Dosage: 125 MG (25 MG)
  2. ZOLOFT [Suspect]
     Indication: OBSESSIVE-COMPULSIVE DISORDER
     Dosage: 125 MG (25 MG)
  3. ATARAX [Suspect]
     Indication: ILL-DEFINED DISORDER

REACTIONS (2)
  - SUICIDE ATTEMPT [None]
  - TREMOR [None]
